FAERS Safety Report 19493041 (Version 1)
Quarter: 2021Q3

REPORT INFORMATION
  Report Type: Spontaneous
  Country: BA (occurrence: BA)
  Receive Date: 20210705
  Receipt Date: 20210705
  Transmission Date: 20211014
  Serious: Yes (Other)
  Sender: FDA-Public Use
  Company Number: BA-TEVA-2021-BA-1929593

PATIENT
  Age: 70 Year
  Sex: Female

DRUGS (1)
  1. OXALIPLATIN PLIVA [Suspect]
     Active Substance: OXALIPLATIN
     Indication: COLON CANCER
     Dosage: 200 MILLIGRAM DAILY;
     Route: 042
     Dates: start: 20210617, end: 20210617

REACTIONS (5)
  - Asthenia [Recovered/Resolved]
  - Respiration abnormal [Recovered/Resolved]
  - Erythema [Recovered/Resolved]
  - Blood pressure abnormal [Recovered/Resolved]
  - Heart rate abnormal [Recovered/Resolved]

NARRATIVE: CASE EVENT DATE: 20210617
